FAERS Safety Report 18071480 (Version 1)
Quarter: 2020Q3

REPORT INFORMATION
  Report Type: Other
  Country: US (occurrence: US)
  Receive Date: 20200727
  Receipt Date: 20200727
  Transmission Date: 20201103
  Serious: Yes (Hospitalization)
  Sender: FDA-Public Use
  Company Number: US-ROCHE-2642450

PATIENT
  Sex: Male
  Weight: 9.53 kg

DRUGS (4)
  1. NUTROPIN [Suspect]
     Active Substance: SOMATROPIN
     Indication: HYPOPITUITARISM
  2. NUTROPIN [Suspect]
     Active Substance: SOMATROPIN
     Indication: GROWTH HORMONE DEFICIENCY
  3. HYDROCORTISONE. [Concomitant]
     Active Substance: HYDROCORTISONE
     Dosage: AS NEEDED
     Route: 061
  4. NUTROPIN [Suspect]
     Active Substance: SOMATROPIN
     Indication: OPTIC NERVE HYPOPLASIA
     Route: 058

REACTIONS (2)
  - Respiration abnormal [Unknown]
  - Pneumonia [Recovered/Resolved]
